FAERS Safety Report 14115428 (Version 2)
Quarter: 2018Q3

REPORT INFORMATION
  Report Type: Spontaneous
  Country: US (occurrence: US)
  Receive Date: 20171023
  Receipt Date: 20180924
  Transmission Date: 20181010
  Serious: No
  Sender: FDA-Public Use
  Company Number: US-ALLERGAN-1726683US

PATIENT
  Sex: Female

DRUGS (10)
  1. LINZESS [Suspect]
     Active Substance: LINACLOTIDE
     Indication: CROHN^S DISEASE
     Dosage: 145 ?G, QD
     Route: 048
  2. NORTRIPTYLIN [Concomitant]
     Active Substance: NORTRIPTYLINE
     Indication: DEPRESSION
     Dosage: UNK
     Route: 065
     Dates: start: 1999
  3. CLONAZEPAM. [Concomitant]
     Active Substance: CLONAZEPAM
     Indication: DEPRESSION
     Dosage: UNK
     Dates: start: 1999
  4. QUETIAPINE. [Concomitant]
     Active Substance: QUETIAPINE
     Indication: ANXIETY
  5. LINZESS [Suspect]
     Active Substance: LINACLOTIDE
     Dosage: 290 ?G, QD
     Route: 065
  6. CLONAZEPAM. [Concomitant]
     Active Substance: CLONAZEPAM
     Indication: ANXIETY
  7. THALIZIDE [Concomitant]
     Indication: CROHN^S DISEASE
     Dosage: UNK
     Route: 065
  8. QUETIAPINE. [Concomitant]
     Active Substance: QUETIAPINE
     Indication: DEPRESSION
     Dosage: UNK
     Route: 065
  9. METFORMIN [Concomitant]
     Active Substance: METFORMIN HYDROCHLORIDE
     Indication: DIABETES MELLITUS
     Dosage: UNK
     Route: 065
  10. NORTRIPTYLIN [Concomitant]
     Active Substance: NORTRIPTYLINE
     Indication: ANXIETY

REACTIONS (11)
  - Abdominal distension [Unknown]
  - Somnolence [Unknown]
  - Malaise [Unknown]
  - Nausea [Recovered/Resolved]
  - Abdominal pain upper [Unknown]
  - Decreased appetite [Recovered/Resolved]
  - Eructation [Unknown]
  - Vomiting [Unknown]
  - Extra dose administered [Unknown]
  - Drug ineffective [Unknown]
  - Off label use [Unknown]

NARRATIVE: CASE EVENT DATE: 20170621
